FAERS Safety Report 8916992 (Version 1)
Quarter: 2012Q4

REPORT INFORMATION
  Report Type: 
  Country: US (occurrence: US)
  Receive Date: 20121120
  Receipt Date: 20121120
  Transmission Date: 20130627
  Serious: No
  Sender: FDA-Public Use
  Company Number: US-PFIZER INC-2012271139

PATIENT
  Age: 65 Year
  Sex: Female
  Weight: 88.44 kg

DRUGS (5)
  1. AMOXICILLIN [Suspect]
     Dosage: UNK
  2. DOXYCYCLINE [Suspect]
     Dosage: UNK
  3. ERYTHROMYCIN [Suspect]
     Dosage: UNK
  4. HYDROCHLOROTHIAZIDE\LISINOPRIL [Suspect]
     Dosage: UNK
  5. ERYC [Suspect]
     Dosage: UNK

REACTIONS (1)
  - Drug hypersensitivity [Unknown]
